FAERS Safety Report 7432524-7 (Version None)
Quarter: 2011Q2

REPORT INFORMATION
  Report Type: 
  Country: None (occurrence: None)
  Receive Date: 20110422
  Receipt Date: 20110419
  Transmission Date: 20111010
  Serious: Yes (Other)
  Sender: FDA-Public Use
  Company Number: JP-ABBOTT-10P-087-0670104-00

PATIENT
  Sex: Male

DRUGS (5)
  1. METHOTREXATE [Suspect]
     Indication: PRODUCT USED FOR UNKNOWN INDICATION
     Route: 048
     Dates: end: 20100830
  2. HUMIRA [Suspect]
     Indication: RHEUMATOID ARTHRITIS
     Route: 058
     Dates: start: 20100310, end: 20100720
  3. PREDNISOLONE [Concomitant]
     Dosage: 5MG DAILY
     Route: 048
  4. PREDNISOLONE [Concomitant]
     Dosage: 7.5MG DAILY
     Route: 048
  5. PREDNISOLONE [Concomitant]
     Indication: RHEUMATOID ARTHRITIS
     Dosage: 2.5MG DAILY
     Route: 048

REACTIONS (2)
  - MYELODYSPLASTIC SYNDROME [None]
  - METASTATIC GASTRIC CANCER [None]
